FAERS Safety Report 7623067-6 (Version None)
Quarter: 2011Q3

REPORT INFORMATION
  Report Type: 
  Country: None (occurrence: None)
  Receive Date: 20110720
  Receipt Date: 20110715
  Transmission Date: 20111222
  Serious: Yes (Hospitalization)
  Sender: FDA-Public Use
  Company Number: DE-SANOFI-AVENTIS-2011SA045016

PATIENT
  Age: 69 Year
  Sex: Female
  Weight: 105.8 kg

DRUGS (6)
  1. DOCETAXEL [Suspect]
     Indication: BREAST CANCER
     Route: 041
     Dates: start: 20110429, end: 20110429
  2. CYCLOPHOSPHAMIDE [Suspect]
     Indication: BREAST CANCER
     Route: 041
  3. DOCETAXEL [Suspect]
     Route: 041
  4. DOCETAXEL [Suspect]
     Route: 041
  5. DEXAMETHASONE [Suspect]
     Indication: ANTIINFLAMMATORY THERAPY
     Route: 042
     Dates: start: 20110429
  6. CYCLOPHOSPHAMIDE [Suspect]
     Route: 041
     Dates: start: 20110429, end: 20110429

REACTIONS (2)
  - POLYDIPSIA [None]
  - HYPERGLYCAEMIA [None]
